FAERS Safety Report 6138449-1 (Version None)
Quarter: 2009Q1

REPORT INFORMATION
  Report Type: 
  Country: None (occurrence: None)
  Receive Date: 20090331
  Receipt Date: 20090324
  Transmission Date: 20090719
  Serious: Yes (Other)
  Sender: FDA-Public Use
  Company Number: DE-BRISTOL-MYERS SQUIBB COMPANY-14566582

PATIENT
  Age: 49 Year

DRUGS (4)
  1. CISPLATIN [Suspect]
     Indication: THERAPEUTIC EMBOLISATION
  2. MITOMYCIN [Suspect]
     Indication: THERAPEUTIC EMBOLISATION
  3. GEMCITABINE [Suspect]
     Indication: THERAPEUTIC EMBOLISATION
  4. CONTRAST AGENT [Suspect]
     Indication: THERAPEUTIC EMBOLISATION

REACTIONS (1)
  - ANAPHYLACTIC REACTION [None]
